FAERS Safety Report 12806790 (Version 1)
Quarter: 2016Q4

REPORT INFORMATION
  Report Type: Spontaneous
  Country: US (occurrence: US)
  Receive Date: 20161004
  Receipt Date: 20161004
  Transmission Date: 20170207
  Serious: No
  Sender: FDA-Public Use
  Company Number: US-JNJFOC-20160810383

PATIENT
  Sex: Female

DRUGS (4)
  1. SUDAFED 12 HOUR [Suspect]
     Active Substance: PSEUDOEPHEDRINE HYDROCHLORIDE
     Indication: SINUS CONGESTION
     Dosage: AMOUNT INDICATED EVERY 12 HOURS, USED FOR ABOUT A MONTH
     Route: 048
     Dates: end: 20160809
  2. SUDAFED 12 HOUR [Suspect]
     Active Substance: PSEUDOEPHEDRINE HYDROCHLORIDE
     Indication: THROAT IRRITATION
     Dosage: AMOUNT INDICATED EVERY 12 HOURS, USED FOR ABOUT A MONTH
     Route: 048
     Dates: end: 20160809
  3. SUDAFED 12 HOUR [Suspect]
     Active Substance: PSEUDOEPHEDRINE HYDROCHLORIDE
     Indication: RHINORRHOEA
     Dosage: AMOUNT INDICATED EVERY 12 HOURS, USED FOR ABOUT A MONTH
     Route: 048
     Dates: end: 20160809
  4. SUDAFED 12 HOUR [Suspect]
     Active Substance: PSEUDOEPHEDRINE HYDROCHLORIDE
     Indication: UPPER-AIRWAY COUGH SYNDROME
     Dosage: AMOUNT INDICATED EVERY 12 HOURS, USED FOR ABOUT A MONTH
     Route: 048
     Dates: end: 20160809

REACTIONS (3)
  - Drug ineffective [Unknown]
  - Off label use [Unknown]
  - Drug ineffective for unapproved indication [Unknown]
